FAERS Safety Report 12350980 (Version 1)
Quarter: 2016Q2

REPORT INFORMATION
  Report Type: Spontaneous
  Country: US (occurrence: None)
  Receive Date: 20160509
  Receipt Date: 20160509
  Transmission Date: 20160815
  Serious: Yes (Other)
  Sender: FDA-Public Use
  Company Number: None

PATIENT
  Age: 39 Year
  Sex: Male
  Weight: 103.87 kg

DRUGS (18)
  1. PROZAC [Concomitant]
     Active Substance: FLUOXETINE HYDROCHLORIDE
  2. AMOXICILLIN 500 MG CAPSULE, 500 MG [Suspect]
     Active Substance: AMOXICILLIN
     Indication: SINUSITIS
     Route: 048
  3. VITAMIN B12 [Concomitant]
     Active Substance: CYANOCOBALAMIN
  4. NORVASC [Concomitant]
     Active Substance: AMLODIPINE BESYLATE
  5. ALLERGY SHOTS [Concomitant]
     Active Substance: UNSPECIFIED INGREDIENT
  6. DIOVAN HCT [Concomitant]
     Active Substance: HYDROCHLOROTHIAZIDE\VALSARTAN
  7. DUONEB [Concomitant]
     Active Substance: ALBUTEROL SULFATE\IPRATROPIUM BROMIDE
  8. LIDOCAINE. [Concomitant]
     Active Substance: LIDOCAINE
  9. TRIMCINOLONE OINTMENT [Concomitant]
  10. COMBIVENT [Concomitant]
     Active Substance: ALBUTEROL SULFATE\IPRATROPIUM BROMIDE
  11. PROCTOZONE [Concomitant]
     Active Substance: HYDROCORTISONE
  12. SENTRY-VITE SENIOR [Concomitant]
  13. FLONASE [Concomitant]
     Active Substance: FLUTICASONE PROPIONATE
  14. EPIPEN [Concomitant]
     Active Substance: EPINEPHRINE
  15. ADVAIR HFA [Concomitant]
     Active Substance: FLUTICASONE PROPIONATE\SALMETEROL XINAFOATE
  16. MELATONIN [Concomitant]
     Active Substance: MELATONIN
  17. CPAP [Concomitant]
     Active Substance: DEVICE
  18. NEBULIZER [Concomitant]
     Active Substance: DEVICE

REACTIONS (1)
  - Diarrhoea [None]

NARRATIVE: CASE EVENT DATE: 20160506
